FAERS Safety Report 10668376 (Version 2)
Quarter: 2015Q1

REPORT INFORMATION
  Report Type: Spontaneous
  Country: DE (occurrence: DE)
  Receive Date: 20141222
  Receipt Date: 20150108
  Transmission Date: 20150720
  Serious: Yes (Hospitalization, Other)
  Sender: FDA-Public Use
  Company Number: DE-TEVA-529272GER

PATIENT
  Sex: Female

DRUGS (2)
  1. MARCUMAR [Concomitant]
     Active Substance: PHENPROCOUMON
     Dates: start: 2014
  2. LEVETIRACETAM. [Suspect]
     Active Substance: LEVETIRACETAM
     Dates: start: 2014

REACTIONS (10)
  - Psychomotor skills impaired [Recovered/Resolved]
  - Speech disorder [Recovered/Resolved]
  - Cerebral haemorrhage [Recovered/Resolved]
  - Abasia [Recovered/Resolved]
  - Multiple sclerosis relapse [Recovered/Resolved]
  - Hypoaesthesia [Recovering/Resolving]
  - Hypoaesthesia [Recovered/Resolved]
  - Cerebral venous thrombosis [Recovered/Resolved]
  - Aphasia [Recovered/Resolved]
  - Mental disorder [Recovered/Resolved]

NARRATIVE: CASE EVENT DATE: 20140829
